FAERS Safety Report 22137691 (Version 3)
Quarter: 2023Q2

REPORT INFORMATION
  Report Type: Report from Study
  Country: US (occurrence: US)
  Receive Date: 20230325
  Receipt Date: 20230606
  Transmission Date: 20230721
  Serious: No
  Sender: FDA-Public Use
  Company Number: US-002147023-NVSC2023US068717

PATIENT
  Sex: Female

DRUGS (1)
  1. ILARIS [Suspect]
     Active Substance: CANAKINUMAB
     Indication: Arthralgia
     Dosage: 150 MG ONCE EVERY 8 WEEKS
     Route: 058

REACTIONS (1)
  - Pain [Not Recovered/Not Resolved]
